FAERS Safety Report 19039250 (Version 5)
Quarter: 2021Q3

REPORT INFORMATION
  Report Type: Report from Study
  Country: GB (occurrence: GB)
  Receive Date: 20210322
  Receipt Date: 20210902
  Transmission Date: 20211014
  Serious: Yes (Death, Other)
  Sender: FDA-Public Use
  Company Number: GB-ACCORD-220019

PATIENT
  Age: 55 Year
  Sex: Female

DRUGS (39)
  1. TRASTUZUMAB/EMTANSINE [Suspect]
     Active Substance: ADO-TRASTUZUMAB EMTANSINE
     Indication: PRODUCT USED FOR UNKNOWN INDICATION
     Route: 042
     Dates: start: 20190627, end: 20190718
  2. AMIKACIN. [Concomitant]
     Active Substance: AMIKACIN
     Indication: BILIARY SEPSIS
     Route: 042
     Dates: start: 20200504, end: 20200504
  3. TRANEXAMIC ACID. [Concomitant]
     Active Substance: TRANEXAMIC ACID
     Indication: DUODENAL ULCER
     Dosage: 1 GRAM
     Route: 048
     Dates: start: 20201112
  4. MEROPENEM. [Concomitant]
     Active Substance: MEROPENEM
     Indication: ABDOMINAL PAIN
     Dosage: UNK
     Route: 042
     Dates: start: 20201130, end: 20201209
  5. FLUCLOXACILLIN [Concomitant]
     Active Substance: FLUCLOXACILLIN
     Indication: FOLLICULITIS
     Route: 048
     Dates: start: 20190122
  6. IKERVIS [Concomitant]
     Active Substance: CYCLOSPORINE
     Indication: BLEPHARITIS
     Route: 047
     Dates: start: 201708
  7. CETIRIZINE [Concomitant]
     Active Substance: CETIRIZINE HYDROCHLORIDE
     Indication: PUSTULE
     Dosage: UNK UNK, QD
     Route: 048
     Dates: start: 20190313
  8. TEICOPLANIN [Concomitant]
     Active Substance: TEICOPLANIN
     Dosage: UNK
     Route: 042
     Dates: start: 20201028
  9. XELODA [Concomitant]
     Active Substance: CAPECITABINE
     Dosage: 1300 MILLIGRAM
     Route: 048
     Dates: start: 20201020
  10. LOPERAMIDE [Concomitant]
     Active Substance: LOPERAMIDE
     Dosage: 1 DOSAGE FORM, AS NECESSARY
     Route: 048
     Dates: start: 20170613
  11. CIPROFLOXACIN. [Concomitant]
     Active Substance: CIPROFLOXACIN
     Indication: CHOLECYSTITIS ACUTE
     Dosage: 500 MILLIGRAM, 0.5 DAY
     Route: 048
     Dates: start: 20200909, end: 20200916
  12. LANSOPRAZOLE. [Concomitant]
     Active Substance: LANSOPRAZOLE
     Indication: GASTRITIS
     Dosage: UNK UNK, QD
     Route: 048
     Dates: start: 20190730, end: 20190730
  13. DOMPERIDONE [Concomitant]
     Active Substance: DOMPERIDONE
     Dosage: 10 MILLIGRAM, 0.33 DAY
     Route: 048
     Dates: start: 20170523
  14. DIETHANOLAMINE FUSIDATE/FUSIDATE SODIUM/FUSIDIC ACID [Concomitant]
     Active Substance: DIETHANOLAMINE FUSIDATE\FUSIDATE SODIUM\FUSIDIC ACID
     Dates: start: 201905
  15. AMOXICILLIN. [Concomitant]
     Active Substance: AMOXICILLIN
     Indication: ABDOMINAL PAIN
  16. METRONIDAZOLE. [Concomitant]
     Active Substance: METRONIDAZOLE
     Indication: ABDOMINAL PAIN UPPER
     Dosage: ALSO FROM 30?JUN?2020 TO 09?JUL?2020
     Route: 042
     Dates: start: 20200630, end: 20200709
  17. VANCOMYCIN [Concomitant]
     Active Substance: VANCOMYCIN
     Indication: CLOSTRIDIUM DIFFICILE INFECTION
     Dosage: 125 MILLIGRAM, 0.25 DAY
     Route: 048
     Dates: start: 20201030, end: 20201104
  18. CALCICHEW D3 FORTE [Concomitant]
     Active Substance: CALCIUM\CHOLECALCIFEROL
     Dosage: UNK, 0.33 DAY
     Route: 048
     Dates: start: 20170525
  19. ABRAXANE [Suspect]
     Active Substance: PACLITAXEL
     Indication: PRODUCT USED FOR UNKNOWN INDICATION
     Dosage: 275 MILLIGRAM
     Route: 042
     Dates: start: 20170705, end: 20170726
  20. TRASTUZUMAB. [Suspect]
     Active Substance: TRASTUZUMAB
     Indication: BREAST CANCER
     Dosage: 525 MILLIGRAM, Q3WK, LOADING DOSE
     Route: 042
     Dates: start: 20170524, end: 20170524
  21. CEFTRIAXONE. [Concomitant]
     Active Substance: CEFTRIAXONE
     Indication: BILIARY SEPSIS
     Dosage: 250 MILLIGRAM, 0.5 DAY
     Route: 048
     Dates: start: 20200928, end: 20201012
  22. CEFUROXIME. [Concomitant]
     Active Substance: CEFUROXIME
     Indication: BILIARY SEPSIS
     Dosage: 250 MILLIGRAM, 0.5 DAY
     Route: 048
     Dates: start: 20200925, end: 20201009
  23. OMEPRAZOLE. [Concomitant]
     Active Substance: OMEPRAZOLE
     Indication: DUODENAL ULCER
     Dosage: 40 MILLIGRAM, 0.5 DAY
     Route: 048
     Dates: start: 20201113, end: 20210205
  24. AZTREONAM. [Concomitant]
     Active Substance: AZTREONAM
     Indication: BILIARY SEPSIS
     Dosage: UNK
     Route: 042
     Dates: start: 20200925, end: 20200925
  25. DOCETAXEL. [Suspect]
     Active Substance: DOCETAXEL
     Indication: BREAST CANCER
     Dosage: 130 MILLIGRAM, Q3WK
     Route: 042
     Dates: start: 20170525, end: 20170525
  26. CLOBETASOL [Concomitant]
     Active Substance: CLOBETASOL
     Dosage: UNK, 0.5 DAY
     Route: 061
     Dates: start: 20170210
  27. ERTAPENEM/ERTAPENEM SODIUM [Concomitant]
     Active Substance: ERTAPENEM
     Indication: BILIARY SEPSIS
     Dosage: 1 GRAM
     Route: 042
     Dates: start: 20200501, end: 20200502
  28. APIXABAN [Concomitant]
     Active Substance: APIXABAN
  29. AMITRIPTYLINE [Concomitant]
     Active Substance: AMITRIPTYLINE
     Indication: DEPRESSED MOOD
     Dosage: UNK UNK, QD
     Route: 048
     Dates: start: 20190827
  30. PARACETAMOL [Concomitant]
     Active Substance: ACETAMINOPHEN
     Dosage: UNK, AS PER REQUIRED.
     Route: 048
     Dates: start: 20170525
  31. SANDO?K [Concomitant]
     Dosage: UNK, 0.5 DAY
     Route: 048
     Dates: start: 20170525
  32. PERTUZUMAB. [Suspect]
     Active Substance: PERTUZUMAB
     Indication: BREAST CANCER
     Dosage: 840 MILLIGRAM, Q3WK
     Route: 042
     Dates: start: 20170524, end: 20170524
  33. TINZAPARIN/TINZAPARIN SODIUM [Concomitant]
     Active Substance: TINZAPARIN SODIUM
     Indication: THROMBOSIS
     Dosage: UNK UNK, QD
     Route: 058
     Dates: start: 20190916
  34. ZOLEDRONIC ACID [Concomitant]
     Active Substance: ZOLEDRONIC ACID
     Dosage: 4 MILLIGRAM, Q4WK, ONCE IN EVERY 3 TO4 WEEKS.
     Route: 042
     Dates: start: 20170525
  35. CHLORHEXIDINE [Concomitant]
     Active Substance: CHLORHEXIDINE
     Dosage: UNK, 0.25 DAY
     Route: 061
     Dates: start: 20170525
  36. PHYTOMENADIONE [Concomitant]
     Active Substance: PHYTONADIONE
     Route: 042
     Dates: start: 20201112, end: 20201113
  37. HALAVEN [Concomitant]
     Active Substance: ERIBULIN MESYLATE
     Indication: BREAST CANCER
     Dosage: 1.85 MILLIGRAM
     Route: 042
     Dates: start: 20200611, end: 20200820
  38. NERATINIB [Concomitant]
     Active Substance: NERATINIB
     Dosage: 240 MILLIGRAM, QD
     Route: 048
     Dates: start: 20200919, end: 20201104
  39. CHLORPHENAMINE/CHLORPHENAMINE MALEATE/CHLORPHENAMINE RESINATE/CHLORPHENAMINE TANNATE [Concomitant]
     Active Substance: CHLORPHENIRAMINE
     Dosage: UNK, 0.25 DAY
     Route: 048
     Dates: start: 20170526

REACTIONS (3)
  - HER2 positive breast cancer [Fatal]
  - Neuropathy peripheral [Recovering/Resolving]
  - Coagulopathy [Recovering/Resolving]

NARRATIVE: CASE EVENT DATE: 20190716
